FAERS Safety Report 19078005 (Version 1)
Quarter: 2021Q1

REPORT INFORMATION
  Report Type: Spontaneous
  Country: US (occurrence: US)
  Receive Date: 20210331
  Receipt Date: 20210331
  Transmission Date: 20210420
  Serious: Yes (Other)
  Sender: FDA-Public Use
  Company Number: None

PATIENT
  Age: 78 Year
  Sex: Male

DRUGS (2)
  1. AMBRISENTAN TABLET [Suspect]
     Active Substance: AMBRISENTAN
     Indication: PULMONARY ARTERIAL HYPERTENSION
     Route: 048
     Dates: start: 20210324
  2. SILDENAFIL. [Concomitant]
     Active Substance: SILDENAFIL
     Dates: start: 20210320

REACTIONS (5)
  - Nasal congestion [None]
  - Constipation [None]
  - Hypotension [None]
  - Dyspnoea exertional [None]
  - Dyspepsia [None]

NARRATIVE: CASE EVENT DATE: 20210331
